FAERS Safety Report 10077850 (Version 2)
Quarter: 2014Q2

REPORT INFORMATION
  Report Type: Spontaneous
  Country: US (occurrence: US)
  Receive Date: 20140414
  Receipt Date: 20140606
  Transmission Date: 20141212
  Serious: Yes (Other)
  Sender: FDA-Public Use
  Company Number: US-MYLANLABS-2013S1021232

PATIENT
  Age: 61 Year
  Sex: Female
  Weight: 55.79 kg

DRUGS (16)
  1. LEVOTHYROXINE SODIUM TABLETS, USP [Suspect]
     Indication: THYROID DISORDER
     Route: 048
     Dates: start: 20130826, end: 201308
  2. LEVOTHYROXINE SODIUM TABLETS, USP [Suspect]
     Indication: THYROID DISORDER
     Route: 048
     Dates: start: 201309
  3. LEVOXYL [Suspect]
     Indication: HYPOTHYROIDISM
     Dates: start: 2006
  4. SYNTHROID [Suspect]
  5. ARMOUR THYROID [Suspect]
  6. TRINOSIN [Suspect]
  7. OXYCODONE [Suspect]
  8. MORPHINE [Suspect]
  9. MORPHINE [Concomitant]
     Indication: PAIN
     Route: 048
     Dates: start: 2013
  10. OXYCODONE [Concomitant]
     Indication: BREAKTHROUGH PAIN
     Route: 048
  11. ZANAFLEX [Concomitant]
     Indication: MUSCLE RELAXANT THERAPY
     Route: 048
  12. DIAZEPAM [Concomitant]
     Indication: ANXIETY
     Route: 048
  13. NYSTATIN [Concomitant]
     Indication: FUNGAL INFECTION
  14. DOCUSATE [Concomitant]
  15. VITAMIN D [Concomitant]
  16. REFRESH TEARS [Concomitant]

REACTIONS (24)
  - Surgery [Recovered/Resolved]
  - Confusional state [Not Recovered/Not Resolved]
  - Muscular weakness [Not Recovered/Not Resolved]
  - Feeling abnormal [Not Recovered/Not Resolved]
  - Anxiety [Not Recovered/Not Resolved]
  - Irritability [Not Recovered/Not Resolved]
  - Feeling jittery [Not Recovered/Not Resolved]
  - Fatigue [Not Recovered/Not Resolved]
  - Malaise [Not Recovered/Not Resolved]
  - Unevaluable event [Not Recovered/Not Resolved]
  - Reaction to drug excipients [Not Recovered/Not Resolved]
  - Weight decreased [Unknown]
  - Constipation [Not Recovered/Not Resolved]
  - Dry eye [Unknown]
  - Dizziness [Not Recovered/Not Resolved]
  - Blood pressure increased [Unknown]
  - Myalgia [Not Recovered/Not Resolved]
  - Dysstasia [Not Recovered/Not Resolved]
  - Heart rate increased [Unknown]
  - Thyroxine free increased [Unknown]
  - Unevaluable event [Unknown]
  - Chest discomfort [Not Recovered/Not Resolved]
  - Back pain [Not Recovered/Not Resolved]
  - Drug intolerance [Not Recovered/Not Resolved]
